FAERS Safety Report 9128911 (Version 2)
Quarter: 2013Q3

REPORT INFORMATION
  Report Type: Spontaneous
  Country: US (occurrence: US)
  Receive Date: 20130228
  Receipt Date: 20130710
  Transmission Date: 20140515
  Serious: Yes (Other)
  Sender: FDA-Public Use
  Company Number: US-CELGENEUS-163-20785-13022966

PATIENT
  Sex: 0

DRUGS (1)
  1. THALOMID [Suspect]
     Indication: INFLAMMATORY BOWEL DISEASE
     Route: 048

REACTIONS (4)
  - Arterial thrombosis [Unknown]
  - Embolism venous [Unknown]
  - Pulmonary embolism [Unknown]
  - Cerebrovascular accident [Unknown]
